FAERS Safety Report 18414548 (Version 1)
Quarter: 2020Q4

REPORT INFORMATION
  Report Type: Spontaneous
  Country: GB (occurrence: GB)
  Receive Date: 20201022
  Receipt Date: 20201022
  Transmission Date: 20210114
  Serious: Yes (Disabling)
  Sender: FDA-Public Use
  Company Number: GB-ACCORD-205814

PATIENT
  Age: 78 Year
  Sex: Male
  Weight: 61.68 kg

DRUGS (6)
  1. AMLODIPINE [Suspect]
     Active Substance: AMLODIPINE BESYLATE
     Indication: PRODUCT USED FOR UNKNOWN INDICATION
     Route: 048
  2. CETIRIZINE HYDROCHLORIDE. [Concomitant]
     Active Substance: CETIRIZINE HYDROCHLORIDE
  3. CLARITHROMYCIN. [Concomitant]
     Active Substance: CLARITHROMYCIN
  4. CLOPIDOGREL [Concomitant]
     Active Substance: CLOPIDOGREL BISULFATE
  5. PARACETAMOL [Concomitant]
     Active Substance: ACETAMINOPHEN
     Dosage: PARACETAMOL COATED 90%
  6. EURAX [Concomitant]
     Active Substance: CROTAMITON

REACTIONS (15)
  - Anxiety [Unknown]
  - Rash [Not Recovered/Not Resolved]
  - Anger [Unknown]
  - Joint swelling [Unknown]
  - Constipation [Not Recovered/Not Resolved]
  - Inflammation [Unknown]
  - Depression [Unknown]
  - Confusional state [Not Recovered/Not Resolved]
  - Skin irritation [Not Recovered/Not Resolved]
  - Irritability [Unknown]
  - Fall [Unknown]
  - Erythema [Not Recovered/Not Resolved]
  - Skin discolouration [Not Recovered/Not Resolved]
  - Ocular hyperaemia [Unknown]
  - Dizziness [Unknown]

NARRATIVE: CASE EVENT DATE: 2011
